FAERS Safety Report 4952783-X (Version None)
Quarter: 2006Q1

REPORT INFORMATION
  Report Type: 
  Country: None (occurrence: None)
  Receive Date: 20060320
  Receipt Date: 20060306
  Transmission Date: 20060701
  Serious: Yes (Other)
  Sender: FDA-Public Use
  Company Number: 2006032623

PATIENT
  Age: 75 Year
  Sex: Male
  Weight: 81.6475 kg

DRUGS (8)
  1. LIPITOR [Suspect]
     Indication: BLOOD CHOLESTEROL INCREASED
     Dosage: 40 MG (40 MG, 1 IN 1 D), ORAL
     Route: 048
     Dates: end: 20050101
  2. ZETIA [Suspect]
     Indication: BLOOD CHOLESTEROL INCREASED
     Dates: start: 20050101
  3. CRESTOR [Suspect]
     Indication: BLOOD CHOLESTEROL INCREASED
     Dosage: 10 MG
  4. NIACIN [Concomitant]
  5. ACETYLSALICYLIC ACID SRT [Concomitant]
  6. VITAMIN B-12 [Concomitant]
  7. VITAMIN B6 [Concomitant]
  8. FOLIC ACID [Concomitant]

REACTIONS (6)
  - ABASIA [None]
  - ASTHENIA [None]
  - HYPOKINESIA [None]
  - MYALGIA [None]
  - PROTEIN URINE [None]
  - PYREXIA [None]
